FAERS Safety Report 12218380 (Version 2)
Quarter: 2016Q1

REPORT INFORMATION
  Report Type: Spontaneous
  Country: DE (occurrence: DE)
  Receive Date: 20160329
  Receipt Date: 20160330
  Transmission Date: 20160526
  Serious: Yes (Life-Threatening)
  Sender: FDA-Public Use
  Company Number: DE-CELGENE-DEU-2016033966

PATIENT
  Age: 44 Year
  Sex: Female

DRUGS (5)
  1. METHOTREXATE [Concomitant]
     Active Substance: METHOTREXATE
     Indication: PSORIATIC ARTHROPATHY
     Route: 048
  2. METFORMIN [Concomitant]
     Active Substance: METFORMIN HYDROCHLORIDE
     Indication: DIABETES MELLITUS
     Route: 065
  3. OTEZLA [Suspect]
     Active Substance: APREMILAST
     Indication: PROSTATIC SPECIFIC ANTIGEN
     Dosage: 60 MILLIGRAM
     Route: 048
     Dates: start: 20150910, end: 20151220
  4. USTEKINUMAB [Concomitant]
     Active Substance: USTEKINUMAB
     Indication: PSORIATIC ARTHROPATHY
     Route: 065
     Dates: start: 201312, end: 201509
  5. TILIDIN [Concomitant]
     Active Substance: NALOXONE HYDROCHLORIDE\TILIDINE HYDROCHLORIDE
     Indication: PSORIATIC ARTHROPATHY
     Dosage: 56/4
     Route: 065

REACTIONS (1)
  - Bile duct cancer stage II [Recovered/Resolved]

NARRATIVE: CASE EVENT DATE: 20151220
